FAERS Safety Report 12601093 (Version 1)
Quarter: 2016Q3

REPORT INFORMATION
  Report Type: Report from Study
  Country: US (occurrence: US)
  Receive Date: 20160728
  Receipt Date: 20160728
  Transmission Date: 20161109
  Serious: Yes (Other)
  Sender: FDA-Public Use
  Company Number: US-ROCHE-1704004

PATIENT
  Sex: Female
  Weight: 68.1 kg

DRUGS (9)
  1. TAXOTERE [Suspect]
     Active Substance: DOCETAXEL
     Indication: BREAST CANCER
     Route: 042
     Dates: start: 201512, end: 201604
  2. ARIMIDEX [Concomitant]
     Active Substance: ANASTROZOLE
     Indication: BREAST CANCER
     Route: 048
     Dates: start: 201605
  3. NEULASTA [Suspect]
     Active Substance: PEGFILGRASTIM
     Indication: PRODUCT USED FOR UNKNOWN INDICATION
     Dosage: THE DAY AFTER ^TRIPLE COCKTAIL^
     Route: 058
     Dates: start: 2015
  4. HERCEPTIN [Suspect]
     Active Substance: TRASTUZUMAB
     Route: 042
     Dates: start: 201512
  5. CARBOPLATIN. [Suspect]
     Active Substance: CARBOPLATIN
     Indication: BREAST CANCER
     Route: 042
     Dates: start: 201512, end: 201604
  6. PROLIA [Concomitant]
     Active Substance: DENOSUMAB
     Indication: BONE LOSS
     Route: 065
     Dates: start: 201606
  7. HERCEPTIN [Suspect]
     Active Substance: TRASTUZUMAB
     Indication: BREAST CANCER
     Route: 042
     Dates: start: 2015
  8. REQUIP [Concomitant]
     Active Substance: ROPINIROLE HYDROCHLORIDE
     Indication: RESTLESS LEGS SYNDROME
     Dosage: TAKING FOR SEVERAL YEARS, 1TO 2 IN 1 DAY
     Route: 048
  9. LOMOTIL (UNITED STATES) [Concomitant]
     Route: 048

REACTIONS (15)
  - Anxiety [Unknown]
  - Irritable bowel syndrome [Unknown]
  - Feeding disorder [Unknown]
  - Fatigue [Not Recovered/Not Resolved]
  - Vision blurred [Unknown]
  - Alopecia [Not Recovered/Not Resolved]
  - Myalgia [Not Recovered/Not Resolved]
  - Weight decreased [Unknown]
  - Gastric disorder [Unknown]
  - Diarrhoea [Unknown]
  - Photophobia [Unknown]
  - Appetite disorder [Unknown]
  - Irritable bowel syndrome [Recovering/Resolving]
  - Dysgeusia [Unknown]
  - Myalgia [Recovering/Resolving]

NARRATIVE: CASE EVENT DATE: 2015
